FAERS Safety Report 24007397 (Version 3)
Quarter: 2025Q4

REPORT INFORMATION
  Report Type: Spontaneous
  Country: GB (occurrence: GB)
  Receive Date: 20240625
  Receipt Date: 20251201
  Transmission Date: 20260118
  Serious: Yes (Other)
  Sender: AMGEN
  Company Number: GB-Vifor (International) Inc.-VIT-2024-05385

PATIENT
  Age: 58 Year
  Sex: Male
  Weight: 128.5 kg

DRUGS (28)
  1. TAVNEOS [Suspect]
     Active Substance: AVACOPAN
     Indication: Anti-neutrophil cytoplasmic antibody positive vasculitis
     Dosage: 30 MG, BID
     Route: 048
     Dates: start: 20240306, end: 202506
  2. CYCLOPHOSPHAMIDE [Concomitant]
     Active Substance: CYCLOPHOSPHAMIDE
     Indication: Anti-neutrophil cytoplasmic antibody positive vasculitis
     Dosage: CYCLE OF 6 INFUSIONS
     Route: 040
     Dates: start: 20240229, end: 20240611
  3. RITUXIMAB [Concomitant]
     Active Substance: RITUXIMAB
     Indication: Anti-neutrophil cytoplasmic antibody positive vasculitis
     Dosage: CYCLE OF 2 INFUSIONS
     Route: 040
     Dates: start: 20240306, end: 20240306
  4. RITUXIMAB [Concomitant]
     Active Substance: RITUXIMAB
     Dosage: 1000 UNK
     Route: 040
     Dates: start: 20240322, end: 20240322
  5. RITUXIMAB [Concomitant]
     Active Substance: RITUXIMAB
     Dosage: 1000 UNK
     Route: 040
     Dates: start: 20240903, end: 20240903
  6. RITUXIMAB [Concomitant]
     Active Substance: RITUXIMAB
     Dosage: 1000 UNK
     Route: 040
     Dates: start: 20250929, end: 20250929
  7. PREDNISOLONE [Concomitant]
     Active Substance: PREDNISOLONE
     Indication: Anti-neutrophil cytoplasmic antibody positive vasculitis
     Dosage: 30,MG,OD
     Route: 048
     Dates: start: 20240222, end: 20240224
  8. PREDNISOLONE [Concomitant]
     Active Substance: PREDNISOLONE
     Dosage: 60,MG,OD
     Route: 048
     Dates: start: 20240228, end: 20240302
  9. PREDNISOLONE [Concomitant]
     Active Substance: PREDNISOLONE
     Dosage: 40,MG,OD
     Route: 048
     Dates: start: 20240320, end: 202403
  10. PREDNISOLONE [Concomitant]
     Active Substance: PREDNISOLONE
     Dosage: 30,MG,OD
     Route: 048
     Dates: start: 202403, end: 202404
  11. PREDNISOLONE [Concomitant]
     Active Substance: PREDNISOLONE
     Dosage: 20,MG,OD
     Route: 048
     Dates: start: 202404, end: 202404
  12. PREDNISOLONE [Concomitant]
     Active Substance: PREDNISOLONE
     Dosage: 10,MG,OD
     Route: 048
     Dates: start: 202404, end: 202404
  13. PREDNISOLONE [Concomitant]
     Active Substance: PREDNISOLONE
     Dosage: 60,MG,OD
     Route: 048
     Dates: start: 20240305, end: 20240319
  14. ATORVASTATIN [Concomitant]
     Active Substance: ATORVASTATIN
     Indication: Prophylaxis
     Dosage: 40,MG,QD
     Route: 048
     Dates: start: 20240304
  15. BISOPROLOL [Concomitant]
     Active Substance: BISOPROLOL
     Indication: Atrial fibrillation
     Dosage: 10,MG,QD
     Route: 048
  16. CALCIUM CARBONATE\CHOLECALCIFEROL [Concomitant]
     Active Substance: CALCIUM CARBONATE\CHOLECALCIFEROL
     Indication: Prophylaxis
     Dosage: 1.25G PLUS 10MICROGRAMS
     Route: 048
     Dates: start: 20240227
  17. CARBOMER [Concomitant]
     Active Substance: CARBOMER
     Indication: Anti-neutrophil cytoplasmic antibody positive vasculitis
     Dosage: 1,DROP,UNK (OPHTHALMIC)
  18. COTRIMOXAZOLE [Concomitant]
     Active Substance: SULFAMETHOXAZOLE\TRIMETHOPRIM
     Indication: Prophylaxis
     Dosage: 480,MG,TIW
     Route: 048
     Dates: start: 20240228
  19. FAMOTIDINE [Concomitant]
     Active Substance: FAMOTIDINE
     Indication: Gastrointestinal disorder prophylaxis
     Dosage: 20,MG,BID
     Route: 048
     Dates: start: 20240307
  20. PRED FORTE [Concomitant]
     Active Substance: PREDNISOLONE ACETATE
     Indication: Anti-neutrophil cytoplasmic antibody positive vasculitis
     Dosage: 1,DROP,BID (OPHTHALMIC)
  21. THIAMINE [Concomitant]
     Active Substance: THIAMINE
     Indication: Vitamin B complex deficiency
     Dosage: 100,MG,QD
     Route: 048
  22. NIACINAMIDE\PYRIDOXINE HYDROCHLORIDE\RIBOFLAVIN\THIAMINE HYDROCHLORIDE [Concomitant]
     Active Substance: NIACINAMIDE\PYRIDOXINE HYDROCHLORIDE\RIBOFLAVIN\THIAMINE HYDROCHLORIDE
     Indication: Vitamin B complex deficiency
     Dosage: 1,DF,QD
     Route: 048
  23. DERMOL [Concomitant]
     Active Substance: BENZALKONIUM CHLORIDE\CHLORHEXIDINE HYDROCHLORIDE\ISOPROPYL MYRISTATE\PARAFFIN
     Indication: Dry skin
     Dosage: APPLICATION ON AFFECTED AREA AS NEEDED
     Route: 061
     Dates: start: 20240310
  24. METHYLPREDNISOLONE [Concomitant]
     Active Substance: METHYLPREDNISOLONE
     Indication: Premedication
     Dosage: 500 MG, OD
     Route: 040
     Dates: start: 20240225, end: 20240227
  25. METHYLPREDNISOLONE [Concomitant]
     Active Substance: METHYLPREDNISOLONE
     Indication: Anti-neutrophil cytoplasmic antibody positive vasculitis
     Dosage: 500 UNK
     Route: 040
     Dates: start: 20240302, end: 20240304
  26. METHYLPREDNISOLONE [Concomitant]
     Active Substance: METHYLPREDNISOLONE
     Dosage: 100 MG, TOT
     Route: 040
     Dates: start: 20240909, end: 20240909
  27. METHYLPREDNISOLONE [Concomitant]
     Active Substance: METHYLPREDNISOLONE
     Dosage: 100 UNK
     Route: 040
     Dates: start: 20250318, end: 20250318
  28. METHYLPREDNISOLONE [Concomitant]
     Active Substance: METHYLPREDNISOLONE
     Dosage: 100 MG, TOT
     Route: 040
     Dates: start: 20250929, end: 20250929

REACTIONS (1)
  - Hyperkalaemia [Recovered/Resolved]

NARRATIVE: CASE EVENT DATE: 20240310
